FAERS Safety Report 13179658 (Version 2)
Quarter: 2017Q1

REPORT INFORMATION
  Report Type: Spontaneous
  Country: TR (occurrence: TR)
  Receive Date: 20170202
  Receipt Date: 20170208
  Transmission Date: 20170428
  Serious: Yes (Death, Hospitalization)
  Sender: FDA-Public Use
  Company Number: TR-TAKEDA-2017TUS002554

PATIENT

DRUGS (1)
  1. COLCHICINE. [Suspect]
     Active Substance: COLCHICINE
     Indication: PRODUCT USED FOR UNKNOWN INDICATION
     Dosage: 1.1 MG/KG, UNK
     Route: 065

REACTIONS (2)
  - Overdose [Unknown]
  - Toxicity to various agents [Fatal]
